FAERS Safety Report 7282180-6 (Version None)
Quarter: 2011Q1

REPORT INFORMATION
  Report Type: 
  Country: None (occurrence: None)
  Receive Date: 20110209
  Receipt Date: 20110208
  Transmission Date: 20110831
  Serious: Yes (Hospitalization)
  Sender: FDA-Public Use
  Company Number: US-BIOGENIDEC-2010BI020444

PATIENT
  Age: 59 Year
  Sex: Female

DRUGS (23)
  1. AMLODIPINE BESYLATE [Concomitant]
     Route: 048
  2. FLUNISOLIDE [Concomitant]
     Route: 055
  3. ZOLPIDEM TARTRATE [Concomitant]
     Route: 048
  4. INSULIN [Concomitant]
     Indication: DIABETES MELLITUS
     Route: 058
  5. LEVOTHYROXINE SODIUM [Concomitant]
     Indication: BLOOD THYROID STIMULATING HORMONE DECREASED
     Route: 048
  6. TIZANIDINE HCL [Concomitant]
     Route: 048
  7. LORAZEPAM [Concomitant]
     Route: 048
  8. OMEPRAZOLE [Concomitant]
     Route: 048
  9. ALBUTEROL [Concomitant]
  10. LORATADINE [Concomitant]
     Route: 048
  11. CLOPIDOGREL [Concomitant]
     Route: 048
  12. M.V.I. [Concomitant]
  13. ERGOCALCIFEROL [Concomitant]
     Route: 048
  14. LISINOPRIL [Concomitant]
     Route: 048
  15. ACETAMINOPHEN [Concomitant]
     Route: 048
  16. EPOETIN ALFA  10000 UNITS Q 14 DAYS, [Concomitant]
     Route: 058
  17. OXYCODONE HCL [Concomitant]
     Route: 048
  18. LISPRO INSULIN [Concomitant]
     Indication: DIABETES MELLITUS
  19. CALCIUM CARBONATE [Concomitant]
     Route: 048
  20. TYSABRI [Suspect]
     Indication: MULTIPLE SCLEROSIS
     Route: 042
     Dates: start: 20070125
  21. PERCOCET [Concomitant]
     Route: 048
  22. TRAMADOL HCL [Concomitant]
     Route: 048
  23. HYDROXYCHLOROQUINE SULFATE [Concomitant]
     Route: 048

REACTIONS (5)
  - ATRIAL FIBRILLATION [None]
  - BLOOD THYROID STIMULATING HORMONE DECREASED [None]
  - HEPATIC ENZYME INCREASED [None]
  - DEHYDRATION [None]
  - RENAL FAILURE [None]
